FAERS Safety Report 10187040 (Version 2)
Quarter: 2014Q2

REPORT INFORMATION
  Report Type: Spontaneous
  Country: US (occurrence: US)
  Receive Date: 20140522
  Receipt Date: 20140610
  Transmission Date: 20141212
  Serious: No
  Sender: FDA-Public Use
  Company Number: US-009507513-1405USA003924

PATIENT
  Age: 32 Year
  Sex: Female

DRUGS (1)
  1. OXYTROL FOR WOMEN [Suspect]
     Indication: URINARY INCONTINENCE
     Dosage: UNK, Q4D
     Route: 062
     Dates: start: 201403, end: 201403

REACTIONS (3)
  - Influenza like illness [Recovered/Resolved]
  - Muscle spasms [Recovered/Resolved]
  - Drug ineffective [Unknown]
